FAERS Safety Report 19248805 (Version 2)
Quarter: 2021Q2

REPORT INFORMATION
  Report Type: Spontaneous
  Country: US (occurrence: US)
  Receive Date: 20210512
  Receipt Date: 20210629
  Transmission Date: 20210717
  Serious: Yes (Other)
  Sender: FDA-Public Use
  Company Number: US-PFIZER INC-2021479049

PATIENT
  Age: 32 Year
  Sex: Male

DRUGS (5)
  1. TYLENOL EXTRA STRENGTH [Concomitant]
     Active Substance: ACETAMINOPHEN
     Dosage: UNK
  2. BENEFIX [Suspect]
     Active Substance: COAGULATION FACTOR IX RECOMBINANT HUMAN\ISOPROPYL ALCOHOL
     Dosage: 3500 IU, DAILY (INFUSE  3500 UNITS (+/?10% ) EVERY 24 HOURS/ MAY INFUSE 7)
     Route: 042
  3. VITAMIN D3 [Concomitant]
     Active Substance: CHOLECALCIFEROL
     Dosage: UNK
  4. BENEFIX [Suspect]
     Active Substance: COAGULATION FACTOR IX RECOMBINANT HUMAN\ISOPROPYL ALCOHOL
     Indication: HAEMORRHAGE
     Dosage: 3500 IU, DAILY (INFUSE  3500 UNITS (+/?10% ) EVERY 24 HOURS/ MAY INFUSE 7)
     Route: 042
  5. GLUCOSAMINE SULFATE [Concomitant]
     Active Substance: GLUCOSAMINE SULFATE
     Dosage: UNK

REACTIONS (2)
  - Haemorrhage [Unknown]
  - Haemarthrosis [Unknown]
